FAERS Safety Report 11869704 (Version 5)
Quarter: 2016Q2

REPORT INFORMATION
  Report Type: Spontaneous
  Country: BR (occurrence: BR)
  Receive Date: 20151228
  Receipt Date: 20160527
  Transmission Date: 20160815
  Serious: Yes (Death, Hospitalization, Other)
  Sender: FDA-Public Use
  Company Number: BR-PFIZER INC-2015278827

PATIENT
  Age: 83 Year
  Sex: Female
  Weight: 55 kg

DRUGS (7)
  1. SUTENT [Suspect]
     Active Substance: SUNITINIB MALATE
     Dosage: 37.5 MG, CYCLE (STRENGTH 12.5 MG), 1X/DAY
     Route: 048
     Dates: start: 2015, end: 20160122
  2. SUTENT [Suspect]
     Active Substance: SUNITINIB MALATE
     Indication: METASTATIC RENAL CELL CARCINOMA
     Dosage: 50 MG, 4X2 SCHEME, 1X/DAY
     Route: 048
     Dates: start: 201507, end: 2015
  3. DIGEPLUS [Concomitant]
     Dosage: UNK
     Dates: start: 201601
  4. ADDERA D3 [Concomitant]
     Active Substance: CHOLECALCIFEROL
     Dosage: UNK
  5. PANTOPRAZOLE [Concomitant]
     Active Substance: PANTOPRAZOLE SODIUM
     Dosage: UNK
     Dates: start: 201601
  6. SUTENT [Suspect]
     Active Substance: SUNITINIB MALATE
     Dosage: UNK (STRENGTH 25 MG)
  7. FENOTEROL HYDROBROMIDE W/IPRATROPIU/00616101/ [Concomitant]
     Dosage: UNK, WITH PHYSIOLOGICAL SALINE
     Route: 055

REACTIONS (20)
  - Aphthous ulcer [Not Recovered/Not Resolved]
  - Vomiting [Recovered/Resolved]
  - Anaemia [Not Recovered/Not Resolved]
  - Glossitis [Recovered/Resolved]
  - Dyspepsia [Not Recovered/Not Resolved]
  - Asthenia [Recovered/Resolved]
  - Haematochezia [Unknown]
  - Stomatitis [Recovered/Resolved]
  - Malnutrition [Recovered/Resolved]
  - Epistaxis [Recovered/Resolved]
  - Dysentery [Recovering/Resolving]
  - Depressed mood [Not Recovered/Not Resolved]
  - Cardio-respiratory arrest [Fatal]
  - Pleural effusion [Not Recovered/Not Resolved]
  - Decreased appetite [Not Recovered/Not Resolved]
  - Thyroid disorder [Not Recovered/Not Resolved]
  - Gastrointestinal disorder [Not Recovered/Not Resolved]
  - Weight decreased [Not Recovered/Not Resolved]
  - Blood pressure fluctuation [Recovering/Resolving]
  - Abdominal distension [Not Recovered/Not Resolved]

NARRATIVE: CASE EVENT DATE: 2015
